FAERS Safety Report 20016239 (Version 1)
Quarter: 2021Q4

REPORT INFORMATION
  Report Type: Spontaneous
  Country: US (occurrence: None)
  Receive Date: 20211103
  Receipt Date: 20211103
  Transmission Date: 20220303
  Serious: Yes (Hospitalization)
  Sender: FDA-Public Use
  Company Number: None

PATIENT
  Sex: Male

DRUGS (6)
  1. HUMIRA [Suspect]
     Active Substance: ADALIMUMAB
     Indication: Psoriatic arthropathy
     Dosage: OTHER FREQUENCY : A14D;?
     Route: 058
     Dates: start: 201903
  2. ASPIRIN CHW [Concomitant]
  3. FOLIC ACID [Concomitant]
     Active Substance: FOLIC ACID
  4. LOVASTATIN [Concomitant]
     Active Substance: LOVASTATIN
  5. METHOTREXATE [Concomitant]
     Active Substance: METHOTREXATE
  6. NITROGLYCERI SUB [Concomitant]

REACTIONS (1)
  - Cardiac pacemaker insertion [None]
